FAERS Safety Report 7947254-2 (Version None)
Quarter: 2011Q4

REPORT INFORMATION
  Report Type: 
  Country: None (occurrence: None)
  Receive Date: 20111129
  Receipt Date: 20111129
  Transmission Date: 20120403
  Serious: Yes (Other)
  Sender: FDA-Public Use
  Company Number: FR-BAYER-2011-114254

PATIENT

DRUGS (1)
  1. PRAZIQUANTEL [Suspect]
     Indication: SCHISTOSOMIASIS
     Dosage: START DAY 10 OR UP TO DAY 15

REACTIONS (5)
  - CEREBRAL INFARCTION [None]
  - SCHISTOSOMIASIS [None]
  - ENCEPHALOPATHY [None]
  - NAIL BED BLEEDING [None]
  - JARISCH-HERXHEIMER REACTION [None]
